FAERS Safety Report 5863378-8 (Version None)
Quarter: 2008Q3

REPORT INFORMATION
  Report Type: 
  Country: None (occurrence: None)
  Receive Date: 20080828
  Receipt Date: 20080820
  Transmission Date: 20090109
  Serious: Yes (Other)
  Sender: FDA-Public Use
  Company Number: PHHY2008DE13513

PATIENT
  Sex: Male
  Weight: 75 kg

DRUGS (9)
  1. TEGRETOL [Suspect]
     Indication: CONVULSION
     Dosage: 400 MG, UNK
     Route: 048
     Dates: start: 20080606, end: 20080705
  2. TEGRETOL [Suspect]
     Indication: PARAESTHESIA
  3. ASPIRIN [Concomitant]
     Indication: PLATELET AGGREGATION INHIBITION
     Dosage: 100 MG, UNK
  4. METOPROLOL SUCCINATE [Concomitant]
     Dosage: UNK
     Route: 048
     Dates: start: 20080606
  5. NORVASC [Concomitant]
     Dosage: 5MG/DAY
     Route: 048
     Dates: start: 20080606, end: 20080705
  6. HYDROCHLOROTHIAZIDE [Concomitant]
     Dosage: UNK
     Route: 048
     Dates: start: 20080606
  7. MAGNESIUM SULFATE [Concomitant]
  8. HMG COA REDUCTASE INHIBITORS [Concomitant]
  9. DELIX [Concomitant]
     Dosage: 7.5MG/D
     Route: 048
     Dates: start: 20080606

REACTIONS (13)
  - ANXIETY [None]
  - ASTHENIA [None]
  - BALANCE DISORDER [None]
  - BRAIN OEDEMA [None]
  - COORDINATION ABNORMAL [None]
  - DIPLOPIA [None]
  - DRUG LEVEL INCREASED [None]
  - GENERAL PHYSICAL HEALTH DETERIORATION [None]
  - HYPOCHLORAEMIA [None]
  - HYPONATRAEMIA [None]
  - HYPOTENSION [None]
  - JOINT SPRAIN [None]
  - MUSCULAR WEAKNESS [None]
